FAERS Safety Report 17135194 (Version 3)
Quarter: 2020Q1

REPORT INFORMATION
  Report Type: Spontaneous
  Country: IT (occurrence: IT)
  Receive Date: 20191210
  Receipt Date: 20200318
  Transmission Date: 20200409
  Serious: Yes (Hospitalization, Other)
  Sender: FDA-Public Use
  Company Number: NVSC2019IT061722

PATIENT
  Age: 66 Year
  Sex: Male

DRUGS (5)
  1. OSELTAMIVIR [Concomitant]
     Active Substance: OSELTAMIVIR
     Indication: RESPIRATORY TRACT INFECTION FUNGAL
     Dosage: UNK
     Route: 065
  2. METHYLPREDNISOLONE. [Suspect]
     Active Substance: METHYLPREDNISOLONE
     Indication: DIFFUSE LARGE B-CELL LYMPHOMA
     Dosage: 1 MG/KG
     Route: 065
  3. MEROPENEM. [Suspect]
     Active Substance: MEROPENEM
     Indication: EVIDENCE BASED TREATMENT
     Dosage: UNK (HIGH-DOSE, EXTENDED INFUSIONS OF MEROPENEM)
     Route: 065
  4. LINEZOLID. [Suspect]
     Active Substance: LINEZOLID
     Indication: EVIDENCE BASED TREATMENT
     Dosage: UNK (HIGH-DOSE, EXTENDED INFUSIONS)
     Route: 065
  5. VORICONAZOLE. [Suspect]
     Active Substance: VORICONAZOLE
     Indication: RESPIRATORY TRACT INFECTION FUNGAL
     Dosage: UNK
     Route: 065

REACTIONS (8)
  - Product use in unapproved indication [Unknown]
  - Influenza [Recovering/Resolving]
  - Pneumonia fungal [Recovered/Resolved]
  - Condition aggravated [Recovering/Resolving]
  - Respiratory distress [Recovering/Resolving]
  - Fungal infection [Unknown]
  - Enterobacter infection [Recovering/Resolving]
  - Geotrichum infection [Recovered/Resolved]
